FAERS Safety Report 23295481 (Version 1)
Quarter: 2023Q4

REPORT INFORMATION
  Report Type: Spontaneous
  Country: US (occurrence: US)
  Receive Date: 20231214
  Receipt Date: 20231214
  Transmission Date: 20240109
  Serious: No
  Sender: FDA-Public Use
  Company Number: US-ALVOGEN-2023092397

PATIENT

DRUGS (1)
  1. FENTANYL [Suspect]
     Active Substance: FENTANYL\FENTANYL CITRATE
     Indication: Product used for unknown indication
     Dosage: EXPIRATION DATE: UU-AUG-2026 (BOX), UU-JUL-2026 (POUCH)

REACTIONS (3)
  - Product packaging issue [Unknown]
  - Product administration error [Unknown]
  - Incorrect dose administered [Unknown]
